FAERS Safety Report 19734907 (Version 1)
Quarter: 2021Q3

REPORT INFORMATION
  Report Type: Spontaneous
  Country: IT (occurrence: IT)
  Receive Date: 20210823
  Receipt Date: 20210823
  Transmission Date: 20211014
  Serious: Yes (Other)
  Sender: FDA-Public Use
  Company Number: IT-SA-2021SA277253

PATIENT
  Age: 66 Year
  Sex: Male

DRUGS (1)
  1. CLOPIDOGREL BISULFATE. [Suspect]
     Active Substance: CLOPIDOGREL BISULFATE
     Dosage: UNK

REACTIONS (4)
  - Erectile dysfunction [Unknown]
  - Asthenia [Unknown]
  - Haematuria [Unknown]
  - Epistaxis [Unknown]

NARRATIVE: CASE EVENT DATE: 20210401
